FAERS Safety Report 21328737 (Version 1)
Quarter: 2022Q3

REPORT INFORMATION
  Report Type: Report from Study
  Country: US (occurrence: None)
  Receive Date: 20220913
  Receipt Date: 20220913
  Transmission Date: 20221026
  Serious: Yes (Other)
  Sender: FDA-Public Use
  Company Number: US-ROCHE-3176398

PATIENT
  Age: 75 Year
  Sex: Male
  Weight: 76.6 kg

DRUGS (3)
  1. ATEZOLIZUMAB [Suspect]
     Active Substance: ATEZOLIZUMAB
     Indication: Bile duct cancer
     Route: 065
     Dates: start: 20220303, end: 20220315
  2. COBIMETINIB [Suspect]
     Active Substance: COBIMETINIB
     Indication: Bile duct cancer
     Route: 065
     Dates: start: 20220303, end: 20220315
  3. VARLILUMAB [Suspect]
     Active Substance: VARLILUMAB
     Indication: Bile duct cancer
     Route: 065
     Dates: start: 20220303, end: 20220315

REACTIONS (1)
  - Anaemia [Recovering/Resolving]

NARRATIVE: CASE EVENT DATE: 20220329
